FAERS Safety Report 9012872 (Version 1)
Quarter: 2013Q1

REPORT INFORMATION
  Report Type: Spontaneous
  Country: US (occurrence: US)
  Receive Date: 20130114
  Receipt Date: 20130114
  Transmission Date: 20140127
  Serious: Yes (Other)
  Sender: FDA-Public Use
  Company Number: CHPA2013US000681

PATIENT
  Age: 66 Year
  Sex: Female

DRUGS (14)
  1. EXCEDRIN EXTRA STRENGTH [Suspect]
     Indication: RHEUMATOID ARTHRITIS
     Dosage: 1 TO 9 DF DAILY
     Route: 048
     Dates: start: 1960
  2. LISINOPRIL HCTZ [Concomitant]
     Dosage: 1 DF DAILY
  3. SIMVASTATIN [Concomitant]
     Dosage: 1 DF DAILY
  4. DRUG THERAPY NOS [Concomitant]
     Dosage: UNK, 3 TIMES DAILY
  5. QVAR [Concomitant]
     Dosage: 80 MCG, TWICE DAILY
  6. FORADIL [Concomitant]
     Dosage: 12 MCG AT BEDTIME
  7. PROAIR (FLUTICASONE PROPIONATE) [Concomitant]
     Dosage: 2 PUFFS, FOUR TIMES DAILY
  8. FUROSEMIDE [Concomitant]
     Dosage: UNK, TWICE DAILY
  9. PLAVIX [Concomitant]
     Dosage: 1 DF DAILY
  10. ZETIA [Concomitant]
     Dosage: 1 DF DAILY
  11. THEODUR [Concomitant]
     Dosage: UNK, 3 TIMES DAILY
  12. ISOSORBIDE [Concomitant]
     Dosage: UNK, TWICE DAILY
  13. DILTIAZEM [Concomitant]
     Dosage: UNK, AT BEDTIME
  14. SPIRIVA [Concomitant]
     Dosage: UNK, ONCE DAILY

REACTIONS (21)
  - Rheumatoid arthritis [Not Recovered/Not Resolved]
  - Chronic obstructive pulmonary disease [Not Recovered/Not Resolved]
  - Stent malfunction [Unknown]
  - Heart rate decreased [Not Recovered/Not Resolved]
  - Malaise [Recovered/Resolved]
  - Pulmonary mass [Not Recovered/Not Resolved]
  - Pulmonary calcification [Not Recovered/Not Resolved]
  - Arterial disorder [Not Recovered/Not Resolved]
  - Melaena [Recovered/Resolved]
  - Chest discomfort [Recovered/Resolved]
  - Joint injury [Not Recovered/Not Resolved]
  - Back disorder [Not Recovered/Not Resolved]
  - Musculoskeletal pain [Not Recovered/Not Resolved]
  - Arthralgia [Not Recovered/Not Resolved]
  - Pain in extremity [Not Recovered/Not Resolved]
  - Pain [Not Recovered/Not Resolved]
  - Off label use [Unknown]
  - Overdose [Unknown]
  - Incorrect drug administration duration [Unknown]
  - Expired drug administered [Unknown]
  - Incorrect dose administered [Unknown]
